FAERS Safety Report 17869886 (Version 1)
Quarter: 2020Q2

REPORT INFORMATION
  Report Type: Spontaneous
  Country: GB (occurrence: GB)
  Receive Date: 20200608
  Receipt Date: 20200608
  Transmission Date: 20200714
  Serious: Yes (Disabling)
  Sender: FDA-Public Use
  Company Number: GB-TEVA-2020-GB-1246421

PATIENT
  Age: 35 Year
  Sex: Female

DRUGS (6)
  1. TETRACYCLINE [Concomitant]
     Active Substance: TETRACYCLINE
  2. DOXYCYCLINE HYDROCHLORIDE [Concomitant]
     Active Substance: DOXYCYCLINE HYDROCHLORIDE
  3. TAMSULOSIN HYDROCHLORIDE. [Suspect]
     Active Substance: TAMSULOSIN HYDROCHLORIDE
     Indication: NEPHROLITHIASIS
     Route: 048
     Dates: start: 20200518, end: 20200518
  4. CLARITHROMYCIN. [Concomitant]
     Active Substance: CLARITHROMYCIN
  5. NITROFURANTOIN. [Concomitant]
     Active Substance: NITROFURANTOIN
  6. PREDNISOLONE. [Concomitant]
     Active Substance: PREDNISOLONE

REACTIONS (7)
  - Headache [Unknown]
  - Facial pain [Unknown]
  - Periorbital pain [Recovering/Resolving]
  - Nasal congestion [Unknown]
  - Photophobia [Recovering/Resolving]
  - Pyrexia [Unknown]
  - Sinus pain [Unknown]

NARRATIVE: CASE EVENT DATE: 20200518
